FAERS Safety Report 5893986-X (Version None)
Quarter: 2008Q3

REPORT INFORMATION
  Report Type: 
  Country: None (occurrence: None)
  Receive Date: 20080923
  Receipt Date: 20080908
  Transmission Date: 20090109
  Serious: No
  Sender: FDA-Public Use
  Company Number: US-B.I. PHARMACEUTICALS,INC./RIDGEFIELD-2008-BP-14242BP

PATIENT
  Age: 52 Year
  Sex: Female

DRUGS (6)
  1. ATROVENT HFA [Suspect]
     Indication: PNEUMONIA
     Route: 055
     Dates: start: 20080402
  2. ATROVENT HFA [Suspect]
     Indication: PLEURISY
  3. ATROVENT HFA [Suspect]
     Indication: BRONCHITIS
  4. SINGULAIR [Concomitant]
     Indication: HYPERSENSITIVITY
     Route: 048
  5. THYROID PILL [Concomitant]
     Indication: HYPOTHYROIDISM
     Route: 048
  6. ALUPENT [Concomitant]
     Indication: ASTHMA
     Route: 055

REACTIONS (1)
  - LUNG DISORDER [None]
